FAERS Safety Report 4584001-9 (Version None)
Quarter: 2005Q1

REPORT INFORMATION
  Report Type: 
  Country: None (occurrence: None)
  Receive Date: 20050125
  Receipt Date: 20041118
  Transmission Date: 20050727
  Serious: No
  Sender: FDA-Public Use
  Company Number: USA041183292

PATIENT
  Age: 84 Year
  Sex: Female

DRUGS (9)
  1. FORTEO [Suspect]
     Indication: COMPRESSION FRACTURE
     Dates: start: 20041028
  2. FORTEO [Suspect]
     Indication: OSTEOPOROSIS
     Dates: start: 20041028
  3. EVISTA [Concomitant]
  4. PREDNISONE TAB [Concomitant]
  5. DEXTRA (DEXTROMETHORPHAN HYDROBROMIDE) [Concomitant]
  6. ACTONEL [Concomitant]
  7. VICODIN [Concomitant]
  8. ALTACE [Concomitant]
  9. LEXAPRO [Concomitant]

REACTIONS (13)
  - ANXIETY [None]
  - ARTHRALGIA [None]
  - ASTHENIA [None]
  - CONTUSION [None]
  - DIZZINESS [None]
  - FALL [None]
  - FRACTURE [None]
  - HYPERSOMNIA [None]
  - LACERATION [None]
  - MUSCLE SPASMS [None]
  - NERVOUSNESS [None]
  - RED BLOOD CELL SEDIMENTATION RATE INCREASED [None]
  - TREMOR [None]
